FAERS Safety Report 15859098 (Version 1)
Quarter: 2019Q1

REPORT INFORMATION
  Report Type: Spontaneous
  Country: GB (occurrence: FR)
  Receive Date: 20190123
  Receipt Date: 20190123
  Transmission Date: 20190417
  Serious: Yes (Other)
  Sender: FDA-Public Use
  Company Number: FR-FRESENIUS KABI-FK201900762

PATIENT
  Age: 23 Year
  Sex: Male
  Weight: 62 kg

DRUGS (7)
  1. FUROSEMIDE SODIUM [Suspect]
     Active Substance: FUROSEMIDE SODIUM
     Indication: ANURIA
     Route: 042
     Dates: start: 20181213, end: 20181219
  2. LEVOCARNITINE. [Concomitant]
     Active Substance: LEVOCARNITINE
     Indication: LONG-CHAIN ACYL-COENZYME A DEHYDROGENASE DEFICIENCY
     Route: 042
     Dates: start: 20181214, end: 20181220
  3. HEPARIN CALCIUM [Suspect]
     Active Substance: HEPARIN CALCIUM
     Indication: PROPHYLAXIS
     Route: 058
     Dates: start: 20181209, end: 20181218
  4. PARACETAMOL [Concomitant]
     Active Substance: ACETAMINOPHEN
     Indication: PAIN
     Route: 042
     Dates: start: 20181210, end: 20181225
  5. LINEZOLID 2 MG/ML [Suspect]
     Active Substance: LINEZOLID
     Indication: BACTERAEMIA
     Route: 042
     Dates: start: 20181211, end: 20181218
  6. ALIMEMAZINE TARTRATE [Suspect]
     Active Substance: TRIMEPRAZINE
     Indication: REVERSAL OF SEDATION
     Route: 048
     Dates: start: 20181214, end: 20181219
  7. GLUCOSE/GLYCINE/ALANINE/SERINE/TYROSINE/LEUCINE/METHIONINE/PHENYLALANINE/VALINE/THREONINE/TRYPTOPHAN [Suspect]
     Active Substance: AMINO ACIDS\DEXTROSE
     Indication: STARVATION
     Route: 042
     Dates: start: 20181206, end: 20181219

REACTIONS (2)
  - Hepatocellular injury [Recovering/Resolving]
  - Cholestasis [Recovering/Resolving]

NARRATIVE: CASE EVENT DATE: 20181217
